FAERS Safety Report 8412436-2 (Version None)
Quarter: 2012Q2

REPORT INFORMATION
  Report Type: 
  Country: None (occurrence: None)
  Receive Date: 20120605
  Receipt Date: 20120521
  Transmission Date: 20120825
  Serious: No
  Sender: FDA-Public Use
  Company Number: US-AMGEN-USASP2012031878

PATIENT
  Age: 70 Year
  Sex: Female

DRUGS (1)
  1. ENBREL [Suspect]
     Indication: RHEUMATOID ARTHRITIS
     Dosage: 50 MG, QWK
     Dates: start: 20120502, end: 20120516

REACTIONS (13)
  - OEDEMA PERIPHERAL [None]
  - PARAESTHESIA [None]
  - PAIN IN JAW [None]
  - EAR PAIN [None]
  - FEELING ABNORMAL [None]
  - ARTHRALGIA [None]
  - PAIN IN EXTREMITY [None]
  - DISORIENTATION [None]
  - NECK PAIN [None]
  - FATIGUE [None]
  - MUSCULOSKELETAL PAIN [None]
  - HYPOAESTHESIA [None]
  - HEADACHE [None]
